FAERS Safety Report 4578205-9 (Version None)
Quarter: 2005Q1

REPORT INFORMATION
  Report Type: 
  Country: None (occurrence: None)
  Receive Date: 20050209
  Receipt Date: 20050126
  Transmission Date: 20050727
  Serious: Yes (Hospitalization)
  Sender: FDA-Public Use
  Company Number: US_0410106363

PATIENT
  Age: 41 Year
  Sex: Male
  Weight: 77 kg

DRUGS (7)
  1. ZYPREXA [Suspect]
     Indication: DEPRESSION
     Dosage: 20 MG
     Dates: start: 19980501, end: 20030901
  2. ZYPREXA [Suspect]
     Indication: SCHIZOAFFECTIVE DISORDER
     Dosage: 20 MG
     Dates: start: 19980501, end: 20030901
  3. DEPAKOTE 9VALPROATE SEMISODIUM) [Concomitant]
  4. DEPAKENE [Concomitant]
  5. ZOLOFT [Concomitant]
  6. INSULIN [Concomitant]
  7. METFORMIN HCL [Concomitant]

REACTIONS (6)
  - BLOOD CHOLESTEROL ABNORMAL [None]
  - BLOOD TRIGLYCERIDES INCREASED [None]
  - DIABETES MELLITUS [None]
  - HEPATITIS VIRAL [None]
  - HYPERGLYCAEMIC HYPEROSMOLAR NONKETOTIC SYNDROME [None]
  - OBESITY [None]
